FAERS Safety Report 7901644-2 (Version None)
Quarter: 2011Q4

REPORT INFORMATION
  Report Type: 
  Country: None (occurrence: None)
  Receive Date: 20111108
  Receipt Date: 20111024
  Transmission Date: 20120403
  Serious: Yes (Hospitalization, Other)
  Sender: FDA-Public Use
  Company Number: JP-ROCHE-696807

PATIENT
  Sex: Male
  Weight: 63 kg

DRUGS (32)
  1. ACTEMRA [Suspect]
     Route: 041
     Dates: start: 20090508, end: 20090508
  2. FERROUS CITRATE [Concomitant]
     Dosage: DOSE FORM: PERORAL AGENT
     Route: 048
  3. MAGMITT [Concomitant]
     Route: 048
  4. ACTEMRA [Suspect]
     Route: 041
     Dates: start: 20080916, end: 20080916
  5. ACTEMRA [Suspect]
     Route: 041
     Dates: start: 20090123, end: 20090123
  6. ACTEMRA [Suspect]
     Route: 041
     Dates: start: 20090728, end: 20090728
  7. ACTEMRA [Suspect]
     Route: 041
     Dates: start: 20100830, end: 20100830
  8. ACTEMRA [Suspect]
     Route: 041
     Dates: start: 20110316, end: 20110316
  9. ACTEMRA [Suspect]
     Route: 041
     Dates: start: 20080826, end: 20080826
  10. ACTEMRA [Suspect]
     Route: 041
     Dates: start: 20081201, end: 20081201
  11. HYDROCHLOROTHIAZIDE/LOSARTAN POTASSIUM [Concomitant]
     Route: 048
  12. ACTEMRA [Suspect]
     Route: 041
     Dates: start: 20090601, end: 20090601
  13. ACTEMRA [Suspect]
     Route: 041
     Dates: start: 20081104, end: 20081104
  14. ACTEMRA [Suspect]
     Route: 041
     Dates: start: 20081226, end: 20081226
  15. PREDNISOLONE [Concomitant]
     Route: 048
     Dates: start: 20080916, end: 20090101
  16. METHYCOBAL [Concomitant]
     Dosage: DOSE FORM: PERORAL AGENT
     Route: 048
     Dates: start: 20080313, end: 20110509
  17. COMELIAN [Concomitant]
     Dosage: DOSE FORM: PERORAL AGENT
     Route: 048
  18. LOXONIN [Concomitant]
     Dosage: DOSE FORM: PERORAL AGENT
     Route: 048
     Dates: start: 20090630, end: 20110509
  19. JUVELA N [Concomitant]
     Dosage: DOSE FORM: PERORAL AGENT
     Route: 048
  20. ACTEMRA [Suspect]
     Route: 041
     Dates: start: 20090630, end: 20090630
  21. ACTEMRA [Suspect]
     Route: 041
     Dates: start: 20090825, end: 20100802
  22. ACTEMRA [Suspect]
     Route: 041
     Dates: start: 20100924, end: 20110216
  23. ACTEMRA [Suspect]
     Route: 041
     Dates: start: 20110502, end: 20110502
  24. PREDNISOLONE [Concomitant]
     Route: 048
     Dates: start: 20090123, end: 20110509
  25. KREMEZIN [Concomitant]
     Dosage: DOSE FORM: PERORAL AGENT
     Route: 048
  26. LANSOPRAZOLE [Concomitant]
     Route: 048
  27. DICLOFENAC SODIUM [Concomitant]
     Dosage: DOSE FORM: SUPPOSITORIAE RECTALE
     Route: 054
  28. ACTEMRA [Suspect]
     Indication: RHEUMATOID ARTHRITIS
     Route: 041
     Dates: start: 20080725, end: 20080725
  29. ACTEMRA [Suspect]
     Route: 041
     Dates: start: 20081010, end: 20081010
  30. ACTEMRA [Suspect]
     Route: 041
  31. PREDNISOLONE [Concomitant]
     Dosage: DOSE FORM: PERORAL AGENT
     Route: 048
     Dates: start: 20080313, end: 20080915
  32. ACTEMRA [Suspect]
     Route: 041
     Dates: start: 20090408, end: 20090408

REACTIONS (8)
  - LYMPHOPENIA [None]
  - SPINAL OSTEOARTHRITIS [None]
  - NEPHROGENIC ANAEMIA [None]
  - DIARRHOEA [None]
  - RENAL IMPAIRMENT [None]
  - DEHYDRATION [None]
  - VOMITING [None]
  - KNEE ARTHROPLASTY [None]
